FAERS Safety Report 20132452 (Version 3)
Quarter: 2022Q1

REPORT INFORMATION
  Report Type: Spontaneous
  Country: US (occurrence: US)
  Receive Date: 20211130
  Receipt Date: 20220304
  Transmission Date: 20220423
  Serious: Yes (Other)
  Sender: FDA-Public Use
  Company Number: US-GILEAD-2021-0557481

PATIENT
  Age: 42 Year
  Sex: Male
  Weight: 108.86 kg

DRUGS (43)
  1. ATRIPLA [Suspect]
     Active Substance: EFAVIRENZ\EMTRICITABINE\TENOFOVIR DISOPROXIL FUMARATE
     Indication: HIV infection
     Dosage: UNK
     Route: 048
     Dates: start: 201102, end: 201311
  2. COMPLERA [Suspect]
     Active Substance: EMTRICITABINE\RILPIVIRINE HYDROCHLORIDE\TENOFOVIR DISOPROXIL FUMARATE
     Indication: HIV infection
     Dosage: UNK
     Route: 048
     Dates: start: 2011
  3. COMPLERA [Suspect]
     Active Substance: EMTRICITABINE\RILPIVIRINE HYDROCHLORIDE\TENOFOVIR DISOPROXIL FUMARATE
     Dosage: UNK
     Route: 048
     Dates: start: 201408, end: 201504
  4. EDURANT [Concomitant]
     Active Substance: RILPIVIRINE HYDROCHLORIDE
  5. NORVIR [Concomitant]
     Active Substance: RITONAVIR
  6. PREZISTA [Concomitant]
     Active Substance: DARUNAVIR ETHANOLATE
  7. TIVICAY [Concomitant]
     Active Substance: DOLUTEGRAVIR SODIUM
  8. ZIAGEN [Concomitant]
     Active Substance: ABACAVIR SULFATE
  9. ALPRAZOLAM [Concomitant]
     Active Substance: ALPRAZOLAM
  10. ANDROGEL [Concomitant]
     Active Substance: TESTOSTERONE
  11. ATORVASTATIN [Concomitant]
     Active Substance: ATORVASTATIN
  12. BUPROPION [Concomitant]
     Active Substance: BUPROPION
  13. CLONAZEPAM [Concomitant]
     Active Substance: CLONAZEPAM
  14. CRESTOR [Concomitant]
     Active Substance: ROSUVASTATIN CALCIUM
  15. CYCLOBENZAPRINE [Concomitant]
     Active Substance: CYCLOBENZAPRINE
  16. EDURANT [Concomitant]
     Active Substance: RILPIVIRINE HYDROCHLORIDE
  17. ESCITALOPRAM [Concomitant]
     Active Substance: ESCITALOPRAM OXALATE
  18. EZETIMIBE [Concomitant]
     Active Substance: EZETIMIBE
  19. GABAPENTIN [Concomitant]
     Active Substance: GABAPENTIN
  20. GLIPIZIDE [Concomitant]
     Active Substance: GLIPIZIDE
  21. HYDROCODONE BITARTRATE AND ACETAMINOPHEN [Concomitant]
     Active Substance: ACETAMINOPHEN\HYDROCODONE BITARTRATE
  22. LANTUS [Concomitant]
     Active Substance: INSULIN GLARGINE
  23. LEVOCETIRIZINE [Concomitant]
     Active Substance: LEVOCETIRIZINE
  24. LEVOTHYROXINE [Concomitant]
     Active Substance: LEVOTHYROXINE
  25. LISINOPRIL [Concomitant]
     Active Substance: LISINOPRIL
  26. LITHIUM CARBONATE [Concomitant]
     Active Substance: LITHIUM CARBONATE
  27. OMEPRAZOLE [Concomitant]
     Active Substance: OMEPRAZOLE
  28. PANTOPRAZOLE [Concomitant]
     Active Substance: PANTOPRAZOLE
  29. ALUMINUM HYDROXIDE\MAGNESIUM CARBONATE [Concomitant]
     Active Substance: ALUMINUM HYDROXIDE\MAGNESIUM CARBONATE
  30. SEROQUEL [Concomitant]
     Active Substance: QUETIAPINE FUMARATE
  31. RISPERIDONE [Concomitant]
     Active Substance: RISPERIDONE
  32. RITONAVIR [Concomitant]
     Active Substance: RITONAVIR
  33. RYBELSUS [Concomitant]
     Active Substance: SEMAGLUTIDE
  34. SUCRALFATE [Concomitant]
     Active Substance: SUCRALFATE
  35. SYNTHROID [Concomitant]
     Active Substance: LEVOTHYROXINE SODIUM
  36. TIZANIDINE [Concomitant]
     Active Substance: TIZANIDINE
  37. TRAZODONE [Concomitant]
     Active Substance: TRAZODONE HYDROCHLORIDE
  38. TRESIBA [Concomitant]
     Active Substance: INSULIN DEGLUDEC
  39. VENTOLIN [Concomitant]
     Active Substance: ALBUTEROL SULFATE
  40. VITAMIN D2 [Concomitant]
     Active Substance: ERGOCALCIFEROL
  41. XANAX [Concomitant]
     Active Substance: ALPRAZOLAM
  42. ZETIA [Concomitant]
     Active Substance: EZETIMIBE
  43. ZIPRASIDONE [Concomitant]
     Active Substance: ZIPRASIDONE

REACTIONS (14)
  - Chronic kidney disease [Not Recovered/Not Resolved]
  - Renal failure [Unknown]
  - Renal failure [Not Recovered/Not Resolved]
  - Glomerular filtration rate abnormal [Unknown]
  - Anxiety [Not Recovered/Not Resolved]
  - Emotional distress [Not Recovered/Not Resolved]
  - Pain [Not Recovered/Not Resolved]
  - Anhedonia [Not Recovered/Not Resolved]
  - Insomnia [Unknown]
  - Pollakiuria [Unknown]
  - Blood creatinine increased [Unknown]
  - Depression [Unknown]
  - Back pain [Unknown]
  - Nocturia [Unknown]

NARRATIVE: CASE EVENT DATE: 20151001
